FAERS Safety Report 7273388-4 (Version None)
Quarter: 2011Q1

REPORT INFORMATION
  Report Type: 
  Country: None (occurrence: None)
  Receive Date: 20110203
  Receipt Date: 20100929
  Transmission Date: 20110831
  Serious: No
  Sender: FDA-Public Use
  Company Number: US-ABBOTT-10P-163-0676217-00

PATIENT
  Sex: Female
  Weight: 68.1 kg

DRUGS (4)
  1. SYNTHROID [Suspect]
     Dates: start: 20100101, end: 20100901
  2. HYZAAR [Concomitant]
     Indication: HYPERTENSION
     Dosage: UNKNOWN
  3. SYNTHROID [Suspect]
     Indication: HYPOTHYROIDISM
     Dates: start: 19980101, end: 20100301
  4. SYNTHROID [Suspect]
     Dates: start: 20100101, end: 20100101

REACTIONS (1)
  - BLOOD THYROID STIMULATING HORMONE INCREASED [None]
